FAERS Safety Report 5940320-2 (Version None)
Quarter: 2008Q4

REPORT INFORMATION
  Report Type: 
  Country: None (occurrence: None)
  Receive Date: 20081104
  Receipt Date: 20081030
  Transmission Date: 20090506
  Serious: Yes (Hospitalization)
  Sender: FDA-Public Use
  Company Number: B0539982A

PATIENT
  Age: 83 Year
  Sex: Female

DRUGS (4)
  1. ARIXTRA [Suspect]
     Indication: THROMBOSIS PROPHYLAXIS
     Dosage: 1.25MG PER DAY
     Route: 058
     Dates: start: 20080912, end: 20080923
  2. PENTCILLIN [Concomitant]
     Indication: INFECTION PROPHYLAXIS
     Dosage: 4G PER DAY
     Route: 042
     Dates: start: 20080910, end: 20080912
  3. VOLTAREN [Concomitant]
     Indication: ANALGESIA
     Dosage: 25MG PER DAY
     Route: 054
     Dates: start: 20080910, end: 20080911
  4. PHENYLEPHRINE HYDROCHLORIDE [Concomitant]
     Indication: DRUG USE FOR UNKNOWN INDICATION
     Route: 042

REACTIONS (2)
  - HAEMORRHOIDAL HAEMORRHAGE [None]
  - SHOCK [None]
